FAERS Safety Report 23321335 (Version 1)
Quarter: 2023Q4

REPORT INFORMATION
  Report Type: Spontaneous
  Country: SE (occurrence: SE)
  Receive Date: 20231220
  Receipt Date: 20231220
  Transmission Date: 20240110
  Serious: Yes (Other)
  Sender: FDA-Public Use
  Company Number: None

PATIENT
  Age: 37 Year
  Sex: Female

DRUGS (1)
  1. KYLEENA [Suspect]
     Active Substance: LEVONORGESTREL
     Indication: Contraception
     Dosage: 17.5?G/DAY
     Route: 015
     Dates: start: 20230406, end: 20231202

REACTIONS (4)
  - Ectopic pregnancy with contraceptive device [Recovering/Resolving]
  - Drug ineffective [Recovering/Resolving]
  - Intra-abdominal haemorrhage [Unknown]
  - Salpingectomy [Unknown]

NARRATIVE: CASE EVENT DATE: 20231101
